FAERS Safety Report 7392165-7 (Version None)
Quarter: 2011Q2

REPORT INFORMATION
  Report Type: 
  Country: None (occurrence: None)
  Receive Date: 20110404
  Receipt Date: 20110328
  Transmission Date: 20111010
  Serious: Yes (Hospitalization)
  Sender: FDA-Public Use
  Company Number: A0921126A

PATIENT
  Age: 49 Year
  Sex: Female
  Weight: 63.5 kg

DRUGS (1)
  1. FLOLAN [Suspect]
     Dosage: 17NGKM UNKNOWN
     Dates: start: 20080601

REACTIONS (1)
  - GASTRIC INFECTION [None]
